FAERS Safety Report 4843595-6 (Version None)
Quarter: 2005Q4

REPORT INFORMATION
  Report Type: 
  Country: None (occurrence: None)
  Receive Date: 20051125
  Receipt Date: 20051110
  Transmission Date: 20060501
  Serious: Yes (Hospitalization)
  Sender: FDA-Public Use
  Company Number: US200511000076

PATIENT
  Age: 13 Year
  Sex: Male

DRUGS (2)
  1. STRATTERA [Suspect]
     Dosage: 18 MG, DAILY (1/D)
     Dates: start: 20050918
  2. STRATTERA [Suspect]
     Dosage: 25 MG, DAILY (1/D)

REACTIONS (3)
  - AGGRESSION [None]
  - BLOOD GLUCOSE ABNORMAL [None]
  - SUICIDAL IDEATION [None]
